FAERS Safety Report 5332322-4 (Version None)
Quarter: 2007Q2

REPORT INFORMATION
  Report Type: 
  Country: None (occurrence: None)
  Receive Date: 20070523
  Receipt Date: 20070521
  Transmission Date: 20071010
  Serious: Yes (Other)
  Sender: FDA-Public Use
  Company Number: A0438810A

PATIENT
  Age: 77 Year
  Sex: Female

DRUGS (3)
  1. AVANDAMET [Suspect]
     Route: 048
     Dates: start: 20030917
  2. AVANDIA [Suspect]
     Route: 048
  3. PRAVACHOL [Concomitant]

REACTIONS (2)
  - BLINDNESS [None]
  - URINE ODOUR ABNORMAL [None]
